FAERS Safety Report 4554961-0 (Version None)
Quarter: 2004Q4

REPORT INFORMATION
  Report Type: 
  Country: None (occurrence: None)
  Receive Date: 20041222
  Receipt Date: 20041109
  Transmission Date: 20050328
  Serious: Yes (Hospitalization)
  Sender: FDA-Public Use
  Company Number: 209824

PATIENT
  Age: 60 Year
  Sex: Female
  Weight: 72.6 kg

DRUGS (5)
  1. AVASTIN [Suspect]
     Indication: COLORECTAL CANCER METASTATIC
     Dosage: 365 MG, Q2W, INTRAVENOUS
     Route: 042
     Dates: start: 20041013, end: 20041013
  2. PHENERGAN [Concomitant]
  3. MULTIVITAMIN (MULTIVITAMINS NOS) [Concomitant]
  4. WARFARIN SODIUM [Concomitant]
  5. VICODIN (HYDROCODONE BITARTRATE, ACETAMINOPHEN) [Concomitant]

REACTIONS (3)
  - ASTHENIA [None]
  - CEREBROVASCULAR ACCIDENT [None]
  - MENTAL STATUS CHANGES [None]
